FAERS Safety Report 12586979 (Version 1)
Quarter: 2016Q3

REPORT INFORMATION
  Report Type: Spontaneous
  Country: None (occurrence: None)
  Receive Date: 20160722
  Receipt Date: 20160722
  Transmission Date: 20161109
  Serious: No
  Sender: FDA-Public Use
  Company Number: None

PATIENT

DRUGS (4)
  1. TEMOZOLOMIDE 100MG MERCK [Suspect]
     Active Substance: TEMOZOLOMIDE
     Indication: PANCREATIC NEUROENDOCRINE TUMOUR METASTATIC
     Dosage: 200MG/M^2 DAY 10-14 ORAL
     Route: 048
     Dates: start: 20160316, end: 20160523
  2. POLYETHYLENE GLYCOL [Concomitant]
     Active Substance: POLYETHYLENE GLYCOLS
  3. RANITIDINE. [Concomitant]
     Active Substance: RANITIDINE
  4. ONDANSETRON [Concomitant]
     Active Substance: ONDANSETRON

REACTIONS (6)
  - Nausea [None]
  - Duodenal ulcer haemorrhage [None]
  - Pancreatic duct obstruction [None]
  - Vomiting [None]
  - Haemoglobin decreased [None]
  - Metastases to small intestine [None]
